FAERS Safety Report 5512931-X (Version None)
Quarter: 2007Q4

REPORT INFORMATION
  Report Type: 
  Country: None (occurrence: None)
  Receive Date: 20071108
  Receipt Date: 20071108
  Transmission Date: 20080405
  Serious: Yes (Other)
  Sender: FDA-Public Use
  Company Number: None

PATIENT
  Age: 40 Year
  Sex: Female
  Weight: 56.6996 kg

DRUGS (3)
  1. CHANTIX [Suspect]
     Indication: SMOKING CESSATION THERAPY
     Dosage: .5 MG   1X-2X DAY WEEK 1  PO;  1 MG  2X DAY - WEEK 2 ON  PO
     Route: 048
     Dates: start: 20070427, end: 20070503
  2. CHANTIX [Suspect]
     Indication: SMOKING CESSATION THERAPY
     Dosage: .5 MG   1X-2X DAY WEEK 1  PO;  1 MG  2X DAY - WEEK 2 ON  PO
     Route: 048
     Dates: start: 20070504, end: 20070522
  3. WALPHED, GENERIC SUDAFED [Concomitant]

REACTIONS (13)
  - AGGRESSION [None]
  - AMNESIA [None]
  - ANGER [None]
  - CRYING [None]
  - DISTURBANCE IN ATTENTION [None]
  - EUPHORIC MOOD [None]
  - FEELING ABNORMAL [None]
  - HALLUCINATION [None]
  - NIGHTMARE [None]
  - PANIC ATTACK [None]
  - SENSORY LOSS [None]
  - TEMPOROMANDIBULAR JOINT SYNDROME [None]
  - TRIGEMINAL NERVE DISORDER [None]
